FAERS Safety Report 21462023 (Version 1)
Quarter: 2022Q4

REPORT INFORMATION
  Report Type: Report from Study
  Country: US (occurrence: US)
  Receive Date: 20221015
  Receipt Date: 20221015
  Transmission Date: 20230113
  Serious: No
  Sender: FDA-Public Use
  Company Number: US-ABBVIE-4148083

PATIENT
  Sex: Female

DRUGS (1)
  1. RINVOQ [Suspect]
     Active Substance: UPADACITINIB
     Indication: Rheumatoid arthritis
     Route: 048

REACTIONS (4)
  - Paranasal sinus hypersecretion [Not Recovered/Not Resolved]
  - Pruritus [Not Recovered/Not Resolved]
  - Arthropod bite [Not Recovered/Not Resolved]
  - Alopecia [Not Recovered/Not Resolved]
